FAERS Safety Report 5741569-4 (Version None)
Quarter: 2008Q2

REPORT INFORMATION
  Report Type: 
  Country: None (occurrence: None)
  Receive Date: 20080519
  Receipt Date: 20080307
  Transmission Date: 20081010
  Serious: Yes (Death, Other)
  Sender: FDA-Public Use
  Company Number: DE-BAYER-200815756GPV

PATIENT

DRUGS (7)
  1. FLUDARABINE PHOSPHATE [Suspect]
     Indication: STEM CELL TRANSPLANT
     Route: 065
  2. MELPHALAN [Suspect]
     Indication: STEM CELL TRANSPLANT
     Dosage: TOTAL DAILY DOSE: 280 MG/M2
  3. CARMUSTINE [Suspect]
     Indication: HAEMATOLOGICAL MALIGNANCY
     Route: 065
  4. CYCLOSPORINE [Suspect]
     Indication: PROPHYLAXIS AGAINST GRAFT VERSUS HOST DISEASE
     Route: 065
  5. MYCOFENOLATE MOFETIL [Suspect]
     Indication: PROPHYLAXIS AGAINST GRAFT VERSUS HOST DISEASE
     Route: 065
  6. ATG (ANTITHYMOCYTE GLOBULIN) [Suspect]
     Indication: STEM CELL TRANSPLANT
  7. METHOTREXATE [Suspect]
     Indication: PROPHYLAXIS AGAINST GRAFT VERSUS HOST DISEASE

REACTIONS (1)
  - DRUG TOXICITY [None]
